FAERS Safety Report 12845041 (Version 2)
Quarter: 2016Q4

REPORT INFORMATION
  Report Type: Spontaneous
  Country: AU (occurrence: AU)
  Receive Date: 20161013
  Receipt Date: 20161123
  Transmission Date: 20170207
  Serious: Yes (Death, Life-Threatening, Other)
  Sender: FDA-Public Use
  Company Number: AU-MALLINCKRODT-T201604883

PATIENT
  Age: 0 Day
  Sex: Male
  Weight: 4 kg

DRUGS (9)
  1. DOBUTAMINE [Concomitant]
     Active Substance: DOBUTAMINE\DOBUTAMINE HYDROCHLORIDE
     Dosage: UNK
     Dates: start: 20161002, end: 20161003
  2. ADRENALINE [Concomitant]
     Active Substance: EPINEPHRINE
     Dosage: UNK
     Dates: start: 20161002, end: 20161003
  3. DOPAMINE [Concomitant]
     Active Substance: DOPAMINE\DOPAMINE HYDROCHLORIDE
     Dosage: UNK
     Dates: start: 20161002, end: 20161003
  4. INOMAX [Suspect]
     Active Substance: NITRIC OXIDE
     Indication: MECONIUM ASPIRATION SYNDROME
     Dosage: 20 PPM, CONTINUOUS
     Dates: start: 20161002, end: 20161003
  5. HYDROCORTISONE. [Concomitant]
     Active Substance: HYDROCORTISONE
     Dosage: UNK
     Dates: start: 20161002, end: 20161003
  6. INOMAX [Suspect]
     Active Substance: NITRIC OXIDE
     Indication: PERSISTENT FOETAL CIRCULATION
  7. PENICILLIN [Concomitant]
     Active Substance: PENICILLIN
     Dosage: UNK
     Dates: start: 20161002, end: 20161003
  8. INOMAX [Suspect]
     Active Substance: NITRIC OXIDE
     Indication: ISCHAEMIA
  9. FENTANYL. [Concomitant]
     Active Substance: FENTANYL
     Dosage: UNK
     Dates: start: 20161002, end: 20161003

REACTIONS (4)
  - Oxygen saturation decreased [Recovering/Resolving]
  - Device issue [Unknown]
  - Ischaemia [Fatal]
  - Blood pressure decreased [Unknown]

NARRATIVE: CASE EVENT DATE: 20161002
